FAERS Safety Report 9227880 (Version 1)
Quarter: 2013Q2

REPORT INFORMATION
  Report Type: Spontaneous
  Country: US (occurrence: US)
  Receive Date: 20130412
  Receipt Date: 20130412
  Transmission Date: 20140414
  Serious: Yes (Other)
  Sender: FDA-Public Use
  Company Number: US-BAYER-2013-043946

PATIENT
  Age: 69 Year
  Sex: Female

DRUGS (3)
  1. CLIMARA PRO [Suspect]
     Indication: HOT FLUSH
     Dosage: UNK
     Dates: start: 2009
  2. CLIMARA PRO [Suspect]
     Indication: HYPERHIDROSIS
  3. LEVOTHYROXINE [Concomitant]

REACTIONS (14)
  - Weight decreased [None]
  - Alopecia [None]
  - Hair disorder [None]
  - Nausea [None]
  - Breast pain [None]
  - Breast tenderness [None]
  - Headache [None]
  - Arrhythmia [None]
  - Heart rate increased [None]
  - Visual impairment [None]
  - Visual acuity reduced [None]
  - Anxiety [None]
  - Nervousness [None]
  - Mood altered [None]
